FAERS Safety Report 7536174-3 (Version None)
Quarter: 2011Q2

REPORT INFORMATION
  Report Type: 
  Country: None (occurrence: None)
  Receive Date: 20110608
  Receipt Date: 20110608
  Transmission Date: 20111010
  Serious: Yes (Other)
  Sender: FDA-Public Use
  Company Number: None

PATIENT
  Age: 21 Year
  Sex: Male
  Weight: 80 kg

DRUGS (8)
  1. RIFAMCIN 450, [Suspect]
     Indication: ANTIBIOTIC THERAPY
     Dosage: RIFAMCIN 450 DAILY PO
     Route: 048
  2. RIFAMCIN 450, [Suspect]
     Indication: TUBERCULOSIS
     Dosage: RIFAMCIN 450 DAILY PO
     Route: 048
  3. ISONIAZID [Suspect]
     Indication: ANTIBIOTIC THERAPY
     Dosage: ISONIAZID DAILY PO
     Route: 048
  4. ISONIAZID [Suspect]
     Indication: TUBERCULOSIS
     Dosage: ISONIAZID DAILY PO
     Route: 048
  5. PYRAZINAMIDE [Suspect]
     Indication: ANTIBIOTIC THERAPY
     Dosage: PYZINA 750 DAILY PO
     Route: 048
  6. PYRAZINAMIDE [Suspect]
     Indication: TUBERCULOSIS
     Dosage: PYZINA 750 DAILY PO
     Route: 048
  7. ETHAMBUTOL HYDROCHLORIDE [Suspect]
     Indication: TUBERCULOSIS
     Dosage: ETHMBUTOL DAILY PO
     Route: 048
  8. ETHAMBUTOL HYDROCHLORIDE [Suspect]
     Indication: ANTIBIOTIC THERAPY
     Dosage: ETHMBUTOL DAILY PO
     Route: 048

REACTIONS (5)
  - VISION BLURRED [None]
  - DISTURBANCE IN ATTENTION [None]
  - HEADACHE [None]
  - VISUAL IMPAIRMENT [None]
  - EYE PAIN [None]
